FAERS Safety Report 6479892-0 (Version None)
Quarter: 2009Q4

REPORT INFORMATION
  Report Type: 
  Country: None (occurrence: None)
  Receive Date: 20091208
  Receipt Date: 20091012
  Transmission Date: 20100525
  Serious: Yes (Other)
  Sender: FDA-Public Use
  Company Number: SE-SANOFI-AVENTIS-200919984GDDC

PATIENT
  Age: 35 Year
  Sex: Female
  Weight: 54 kg

DRUGS (5)
  1. INSULIN GLULISINE [Suspect]
     Dosage: DOSE AS USED: BASAL INFUSION
     Dates: start: 20080421, end: 20080630
  2. INSULIN [Suspect]
  3. NOVALUZID [Concomitant]
  4. ALVEDON [Concomitant]
  5. IPREN [Concomitant]

REACTIONS (1)
  - KETOSIS [None]
